FAERS Safety Report 6400543-5 (Version None)
Quarter: 2009Q4

REPORT INFORMATION
  Report Type: 
  Country: None (occurrence: None)
  Receive Date: 20091013
  Receipt Date: 20091013
  Transmission Date: 20100525
  Serious: Yes (Other)
  Sender: FDA-Public Use
  Company Number: None

PATIENT
  Age: 70 Year
  Sex: Male
  Weight: 81.6475 kg

DRUGS (2)
  1. FELODIPINE 5MG ER MUTUAL BRAND [Suspect]
     Indication: BLOOD PRESSURE SYSTOLIC INCREASED
     Dosage: 5 MG TWICE DAILY PO
     Route: 048
  2. FELODIPINE 5 MG ER MYLAN BRAND [Suspect]
     Indication: BLOOD PRESSURE SYSTOLIC INCREASED
     Dosage: 5 MG TWICE DAILY PO
     Route: 048

REACTIONS (5)
  - BACK PAIN [None]
  - CONSTIPATION [None]
  - DRUG INTOLERANCE [None]
  - PAIN IN EXTREMITY [None]
  - PRODUCT SUBSTITUTION ISSUE [None]
